FAERS Safety Report 16759573 (Version 1)
Quarter: 2019Q4

REPORT INFORMATION
  Report Type: Spontaneous
  Country: US (occurrence: US)
  Receive Date: 20190829
  Receipt Date: 20190829
  Transmission Date: 20200122
  Serious: Yes (Hospitalization, Disabling, Other)
  Sender: FDA-Public Use
  Company Number: None

PATIENT
  Age: 59 Year
  Sex: Female
  Weight: 78.75 kg

DRUGS (1)
  1. HARVONI [Suspect]
     Active Substance: LEDIPASVIR\SOFOSBUVIR
     Indication: HEPATITIS C
     Route: 048

REACTIONS (16)
  - Leukocytosis [None]
  - Nightmare [None]
  - Encephalopathy [None]
  - Thinking abnormal [None]
  - Tremor [None]
  - Impaired work ability [None]
  - Amnesia [None]
  - Haematochezia [None]
  - Fall [None]
  - Concussion [None]
  - Rash [None]
  - Anxiety [None]
  - Arthralgia [None]
  - Swelling [None]
  - Insomnia [None]
  - Urticaria [None]

NARRATIVE: CASE EVENT DATE: 20160101
